FAERS Safety Report 9496497 (Version 1)
Quarter: 2013Q3

REPORT INFORMATION
  Report Type: Report from Study
  Country: AU (occurrence: AU)
  Receive Date: 20130904
  Receipt Date: 20130904
  Transmission Date: 20140515
  Serious: Yes (Other)
  Sender: FDA-Public Use
  Company Number: PHHY2013AU095670

PATIENT
  Age: 19 Year
  Sex: Male

DRUGS (6)
  1. SIMULECT [Suspect]
     Indication: IMMUNOSUPPRESSION
     Dosage: UNK
  2. TACROLIMUS [Concomitant]
     Indication: IMMUNOSUPPRESSION
     Dosage: 10MG/DAY
  3. TACROLIMUS [Concomitant]
     Dosage: 8MG/DAY
  4. MYCOPHENOLATE [Concomitant]
     Indication: IMMUNOSUPPRESSION
     Dosage: UNK
  5. PREDNISOLONE [Concomitant]
     Indication: IMMUNOSUPPRESSION
     Dosage: 10 MG DAILY
  6. PREDNISOLONE [Concomitant]
     Dosage: 20 MG DAILY

REACTIONS (9)
  - Complications of transplanted kidney [Recovering/Resolving]
  - Kidney transplant rejection [Recovering/Resolving]
  - Tubulointerstitial nephritis [Recovering/Resolving]
  - Kidney fibrosis [Recovering/Resolving]
  - Renal tubular atrophy [Recovering/Resolving]
  - Anti-glomerular basement membrane antibody positive [Recovering/Resolving]
  - Blood creatinine increased [Recovering/Resolving]
  - Urine protein/creatinine ratio increased [Recovering/Resolving]
  - Incorrect dose administered [Recovering/Resolving]
